FAERS Safety Report 21551116 (Version 1)
Quarter: 2022Q4

REPORT INFORMATION
  Report Type: Spontaneous
  Country: US (occurrence: None)
  Receive Date: 20221102
  Receipt Date: 20221102
  Transmission Date: 20230112
  Serious: Yes (Life-Threatening, Hospitalization, Disabling)
  Sender: FDA-Public Use
  Company Number: None

PATIENT
  Age: 63 Year
  Sex: Male
  Weight: 86.18 kg

DRUGS (1)
  1. NORCO [Suspect]
     Active Substance: ACETAMINOPHEN\HYDROCODONE BITARTRATE
     Indication: Back pain
     Route: 048
     Dates: start: 2011, end: 20210120

REACTIONS (7)
  - Dysuria [None]
  - Arthralgia [None]
  - Myalgia [None]
  - Bedridden [None]
  - Bladder pain [None]
  - Gastrointestinal pain [None]
  - Product complaint [None]

NARRATIVE: CASE EVENT DATE: 20110501
